FAERS Safety Report 4523415-X (Version None)
Quarter: 2004Q4

REPORT INFORMATION
  Report Type: 
  Country: None (occurrence: None)
  Receive Date: 20041208
  Receipt Date: 20041202
  Transmission Date: 20050328
  Serious: Yes (Death, Life-Threatening, Hospitalization, Other)
  Sender: FDA-Public Use
  Company Number: USA-2004-0017284

PATIENT
  Age: 62 Year
  Sex: Male

DRUGS (6)
  1. MORPHINE SULFATE [Suspect]
     Indication: CANCER PAIN
     Dosage: 30 MG, BID, ORAL
     Route: 048
     Dates: start: 20040915, end: 20040920
  2. TEMODAL [Suspect]
     Indication: METASTATIC MALIGNANT MELANOMA
     Dosage: 370 MG, DAILY, ORAL
     Route: 048
     Dates: start: 20040917, end: 20040920
  3. CISPLATIN [Suspect]
     Indication: METASTATIC MALIGNANT MELANOMA
     Dosage: 140 MG, SINGLE, INTRAVENOUS
     Route: 042
     Dates: start: 20040917, end: 20040917
  4. DIPYRONE TAB [Suspect]
     Indication: PYREXIA
     Dosage: 400 MG, DAILY, ORAL
     Route: 048
     Dates: start: 20040920, end: 20040920
  5. ACETAMINOPHEN [Suspect]
     Indication: PAIN
     Dosage: 1000 MG, BID, ORAL
     Route: 048
     Dates: start: 20040831, end: 20040919
  6. OMEPRAZOLE [Concomitant]

REACTIONS (17)
  - ACUTE PULMONARY OEDEMA [None]
  - ALANINE AMINOTRANSFERASE INCREASED [None]
  - ASPARTATE AMINOTRANSFERASE INCREASED [None]
  - BLOOD CREATININE INCREASED [None]
  - BLOOD LACTATE DEHYDROGENASE INCREASED [None]
  - BLOOD PRESSURE DECREASED [None]
  - COMA [None]
  - ELECTROCARDIOGRAM LOW VOLTAGE [None]
  - FIBRINOLYSIS [None]
  - LOSS OF CONSCIOUSNESS [None]
  - METABOLIC ACIDOSIS [None]
  - PSEUDOMONAS INFECTION [None]
  - PYREXIA [None]
  - SEPTIC SHOCK [None]
  - TACHYCARDIA [None]
  - TUMOUR LYSIS SYNDROME [None]
  - URINE OUTPUT DECREASED [None]
